FAERS Safety Report 13424567 (Version 1)
Quarter: 2017Q2

REPORT INFORMATION
  Report Type: Spontaneous
  Country: US (occurrence: US)
  Receive Date: 20170410
  Receipt Date: 20170410
  Transmission Date: 20170830
  Serious: No
  Sender: FDA-Public Use
  Company Number: US-ELI_LILLY_AND_COMPANY-US201704002730

PATIENT
  Sex: Male

DRUGS (1)
  1. HUMALOG [Suspect]
     Active Substance: INSULIN LISPRO
     Indication: DRUG DOSE OMISSION
     Dosage: UNK, UNKNOWN
     Route: 065

REACTIONS (2)
  - Chills [Unknown]
  - Blood glucose increased [Unknown]
